FAERS Safety Report 7603147-1 (Version None)
Quarter: 2011Q3

REPORT INFORMATION
  Report Type: 
  Country: None (occurrence: None)
  Receive Date: 20110712
  Receipt Date: 20110705
  Transmission Date: 20111222
  Serious: Yes (Death)
  Sender: FDA-Public Use
  Company Number: US-SANOFI-AVENTIS-2011SA042772

PATIENT
  Age: 67 Year
  Sex: Male

DRUGS (5)
  1. ATIVAN [Concomitant]
  2. MULTAQ [Suspect]
     Indication: ATRIAL FIBRILLATION
     Route: 048
     Dates: start: 20090801
  3. PROZAC [Concomitant]
  4. ANTIHYPERTENSIVES [Concomitant]
  5. DRUG USED IN DIABETES [Concomitant]

REACTIONS (3)
  - RESPIRATORY FAILURE [None]
  - CARDIAC FAILURE [None]
  - RENAL FAILURE [None]
